FAERS Safety Report 9725386 (Version 1)
Quarter: 2013Q4

REPORT INFORMATION
  Report Type: Spontaneous
  Country: US (occurrence: None)
  Receive Date: 20131202
  Receipt Date: 20131202
  Transmission Date: 20140711
  Serious: No
  Sender: FDA-Public Use
  Company Number: None

PATIENT
  Age: 10 Year
  Sex: Female

DRUGS (1)
  1. VYVANSE [Suspect]
     Indication: ATTENTION DEFICIT/HYPERACTIVITY DISORDER
     Route: 048
     Dates: start: 20080825, end: 20131001

REACTIONS (10)
  - Skin ulcer [None]
  - Fall [None]
  - Impaired healing [None]
  - Nervousness [None]
  - Anxiety disorder [None]
  - Scar [None]
  - Unevaluable event [None]
  - Disturbance in attention [None]
  - Educational problem [None]
  - Dermatillomania [None]
